FAERS Safety Report 13479650 (Version 1)
Quarter: 2017Q2

REPORT INFORMATION
  Report Type: Spontaneous
  Country: US (occurrence: US)
  Receive Date: 20170425
  Receipt Date: 20170425
  Transmission Date: 20170830
  Serious: No
  Sender: FDA-Public Use
  Company Number: GXBR2017US001179

PATIENT
  Age: 84 Year
  Sex: Male
  Weight: 70.3 kg

DRUGS (1)
  1. KETOCONAZOLE. [Suspect]
     Active Substance: KETOCONAZOLE
     Indication: TRANSIENT ACANTHOLYTIC DERMATOSIS
     Dosage: UNK DF, BID
     Route: 061
     Dates: start: 20170313, end: 20170316

REACTIONS (5)
  - Rash [Recovering/Resolving]
  - Discomfort [Recovering/Resolving]
  - Condition aggravated [Recovering/Resolving]
  - Intentional product use issue [Unknown]
  - Transient acantholytic dermatosis [Recovering/Resolving]

NARRATIVE: CASE EVENT DATE: 20170313
